FAERS Safety Report 13693149 (Version 3)
Quarter: 2017Q3

REPORT INFORMATION
  Report Type: Spontaneous
  Country: IN (occurrence: IN)
  Receive Date: 20170627
  Receipt Date: 20170905
  Transmission Date: 20171127
  Serious: Yes (Other)
  Sender: FDA-Public Use
  Company Number: IN-ALEMBIC PHARMACUETICALS LIMITED-2017SCAL000544

PATIENT

DRUGS (2)
  1. METHOTREXATE. [Suspect]
     Active Substance: METHOTREXATE
     Indication: SQUAMOUS CELL CARCINOMA OF HEAD AND NECK
     Dosage: 15 MG/M2, ONCE A WEEK
     Route: 048
  2. CELECOXIB. [Suspect]
     Active Substance: CELECOXIB
     Indication: SQUAMOUS CELL CARCINOMA OF HEAD AND NECK
     Dosage: 200 MG, BID
     Route: 048

REACTIONS (6)
  - Hyponatraemia [Unknown]
  - Product use in unapproved indication [Unknown]
  - Nausea [Unknown]
  - Therapeutic response unexpected [Unknown]
  - Toxicity to various agents [Unknown]
  - Vomiting [Unknown]
